FAERS Safety Report 5279864-8 (Version None)
Quarter: 2007Q1

REPORT INFORMATION
  Report Type: 
  Country: None (occurrence: None)
  Receive Date: 20070323
  Receipt Date: 20070323
  Transmission Date: 20070707
  Serious: Yes (Hospitalization)
  Sender: FDA-Public Use
  Company Number: None

PATIENT
  Age: 92 Year
  Sex: Female
  Weight: 43.2732 kg

DRUGS (1)
  1. DIGITEK 0.125 MG [Suspect]
     Dosage: 0.125 MG QD PO
     Route: 048
     Dates: start: 20070103, end: 20070203

REACTIONS (1)
  - WRONG DRUG ADMINISTERED [None]
